FAERS Safety Report 19280137 (Version 1)
Quarter: 2021Q2

REPORT INFORMATION
  Report Type: Spontaneous
  Country: US (occurrence: US)
  Receive Date: 20210520
  Receipt Date: 20210520
  Transmission Date: 20210717
  Serious: Yes (Hospitalization, Other)
  Sender: FDA-Public Use
  Company Number: US-CPL-002330

PATIENT
  Age: 36 Year
  Sex: Male

DRUGS (5)
  1. TIZANIDINE. [Suspect]
     Active Substance: TIZANIDINE
     Indication: PRODUCT USED FOR UNKNOWN INDICATION
     Dosage: EVERY 6 H AS NEEDED, INGESTED 80 MG WITH 24 OUNCES OF BEER
  2. ATORVASTATIN [Concomitant]
     Active Substance: ATORVASTATIN
     Indication: DYSLIPIDAEMIA
  3. CETIRIZINE [Concomitant]
     Active Substance: CETIRIZINE HYDROCHLORIDE
  4. LISINOPRIL. [Concomitant]
     Active Substance: LISINOPRIL
     Indication: HYPERTENSION
  5. LEVOTHYROXINE. [Concomitant]
     Active Substance: LEVOTHYROXINE

REACTIONS (5)
  - Potassium wasting nephropathy [Recovering/Resolving]
  - Intentional overdose [Unknown]
  - Acute kidney injury [Recovering/Resolving]
  - Electrocardiogram QT prolonged [Recovering/Resolving]
  - Hypomagnesaemia [Recovering/Resolving]
